FAERS Safety Report 6383787-0 (Version None)
Quarter: 2009Q4

REPORT INFORMATION
  Report Type: 
  Country: None (occurrence: None)
  Receive Date: 20091001
  Receipt Date: 20090925
  Transmission Date: 20100525
  Serious: Yes (Hospitalization, Other)
  Sender: FDA-Public Use
  Company Number: JP-JNJFOC-20090701708

PATIENT
  Sex: Male

DRUGS (10)
  1. RISPERDAL [Suspect]
     Indication: RESTLESSNESS
     Route: 048
  2. TEGRETOL [Suspect]
     Indication: RESTLESSNESS
     Route: 048
  3. PAXIL [Suspect]
     Indication: RESTLESSNESS
     Route: 048
  4. GRAMALIL [Suspect]
     Indication: RESTLESSNESS
     Route: 048
  5. PLAVIX [Suspect]
     Indication: CEREBRAL INFARCTION
     Route: 048
  6. MICARDIS [Suspect]
     Indication: HYPERTENSION
     Route: 048
  7. VOGLIBOSE [Suspect]
     Indication: TYPE 2 DIABETES MELLITUS
     Route: 048
  8. FASTIC [Suspect]
     Indication: TYPE 2 DIABETES MELLITUS
     Route: 048
  9. OMEPRAL [Suspect]
     Indication: GASTRIC ULCER
     Route: 048
  10. VEGETAMIN-B [Suspect]
     Indication: RESTLESSNESS
     Route: 048

REACTIONS (6)
  - BLOOD CREATININE INCREASED [None]
  - BLOOD UREA INCREASED [None]
  - CHOLESTASIS [None]
  - STEVENS-JOHNSON SYNDROME [None]
  - THROMBOCYTOPENIA [None]
  - URINE OUTPUT [None]
